FAERS Safety Report 12927591 (Version 1)
Quarter: 2016Q4

REPORT INFORMATION
  Report Type: Spontaneous
  Country: IT (occurrence: IT)
  Receive Date: 20161109
  Receipt Date: 20161109
  Transmission Date: 20170207
  Serious: Yes (Other)
  Sender: FDA-Public Use
  Company Number: IT-MYLANLABS-2016M1047760

PATIENT

DRUGS (4)
  1. RITONAVIR. [Suspect]
     Active Substance: RITONAVIR
     Indication: ACUTE HIV INFECTION
  2. EMTRICITABINE [Suspect]
     Active Substance: EMTRICITABINE
     Indication: ACUTE HIV INFECTION
  3. TENOFOVIR [Suspect]
     Active Substance: TENOFOVIR
     Indication: ACUTE HIV INFECTION
  4. REYATAZ [Suspect]
     Active Substance: ATAZANAVIR SULFATE
     Indication: ACUTE HIV INFECTION

REACTIONS (4)
  - Orchitis [Unknown]
  - Parotitis [Unknown]
  - Pancytopenia [Unknown]
  - Hypersplenism [Unknown]
